FAERS Safety Report 5298870-0 (Version None)
Quarter: 2007Q2

REPORT INFORMATION
  Report Type: 
  Country: None (occurrence: None)
  Receive Date: 20070417
  Receipt Date: 20070409
  Transmission Date: 20071010
  Serious: Yes (Death, Life-Threatening, Hospitalization)
  Sender: FDA-Public Use
  Company Number: US-BAYER-200711026BWH

PATIENT
  Age: 75 Year
  Sex: Female

DRUGS (3)
  1. AVELOX [Suspect]
     Indication: URINARY TRACT INFECTION
     Route: 042
     Dates: start: 20061101, end: 20061101
  2. DILTIAZEM [Concomitant]
     Indication: HEART RATE IRREGULAR
     Route: 042
     Dates: start: 20061101
  3. DIGOXIN [Concomitant]
     Dosage: TOTAL DAILY DOSE: 0.25 MG
     Route: 042
     Dates: start: 20061101

REACTIONS (5)
  - DEATH [None]
  - ELECTROCARDIOGRAM QT PROLONGED [None]
  - SINUS TACHYCARDIA [None]
  - TORSADE DE POINTES [None]
  - UNRESPONSIVE TO STIMULI [None]
